FAERS Safety Report 5656221-3 (Version None)
Quarter: 2008Q1

REPORT INFORMATION
  Report Type: 
  Country: None (occurrence: None)
  Receive Date: 20080305
  Receipt Date: 20080227
  Transmission Date: 20080703
  Serious: Yes (Other)
  Sender: FDA-Public Use
  Company Number: TAP2008Q00270

PATIENT
  Age: 39 Year
  Sex: Female

DRUGS (1)
  1. LUPRON DEPOT [Suspect]
     Indication: ENDOMETRIAL ABLATION
     Dosage: 3.75 MG, ONCE, INTRAMUSCULAR
     Route: 030
     Dates: start: 20070824, end: 20070824

REACTIONS (1)
  - BONE MARROW FAILURE [None]
